FAERS Safety Report 4305763-1 (Version None)
Quarter: 2004Q1

REPORT INFORMATION
  Report Type: 
  Country: None (occurrence: None)
  Receive Date: 20040225
  Receipt Date: 20021211
  Transmission Date: 20041129
  Serious: Yes (Death)
  Sender: FDA-Public Use
  Company Number: 163-20785-02110048

PATIENT
  Age: 60 Year
  Sex: Female

DRUGS (1)
  1. THALOMID [Suspect]
     Indication: METASTASES TO SKIN
     Dosage: 400 MG, QD, ORAL
     Route: 048
     Dates: start: 20010401, end: 20021018

REACTIONS (1)
  - MULTIPLE MYELOMA [None]
